FAERS Safety Report 6390398-X (Version None)
Quarter: 2009Q4

REPORT INFORMATION
  Report Type: 
  Country: None (occurrence: None)
  Receive Date: 20091006
  Receipt Date: 20090930
  Transmission Date: 20100525
  Serious: Yes (Hospitalization, Other)
  Sender: FDA-Public Use
  Company Number: US-MERCK-0909USA04818

PATIENT
  Age: 63 Year
  Sex: Female

DRUGS (2)
  1. ZOCOR [Suspect]
     Indication: BLOOD CHOLESTEROL INCREASED
     Route: 048
     Dates: start: 20010101, end: 20060629
  2. ZOCOR [Suspect]
     Route: 048
     Dates: start: 20070101, end: 20070801

REACTIONS (2)
  - CARDIAC DISORDER [None]
  - GASTRIC DISORDER [None]
